FAERS Safety Report 21751912 (Version 1)
Quarter: 2022Q4

REPORT INFORMATION
  Report Type: Spontaneous
  Country: US (occurrence: US)
  Receive Date: 20221220
  Receipt Date: 20221220
  Transmission Date: 20230113
  Serious: No
  Sender: FDA-Public Use
  Company Number: US-CADILA HEALTHCARE LIMITED-US-ZYDUS-085162

PATIENT

DRUGS (6)
  1. PEMETREXED [Suspect]
     Active Substance: PEMETREXED
     Indication: Product used for unknown indication
     Dosage: EVERY 21 DAYS
     Route: 042
     Dates: start: 20220801
  2. PAROXETINE [Concomitant]
     Active Substance: PAROXETINE
     Dosage: UNK, UNK
     Route: 065
     Dates: start: 20220614
  3. OLANZAPINE [Concomitant]
     Active Substance: OLANZAPINE
     Indication: Product used for unknown indication
     Dosage: UNK, UNK
     Route: 065
     Dates: start: 20220608
  4. ONDANSETRON [Concomitant]
     Active Substance: ONDANSETRON
     Dosage: UNK, UNK
     Route: 065
     Dates: start: 20220425
  5. PROCHLORPERAZINE [Concomitant]
     Active Substance: PROCHLORPERAZINE
     Dosage: UNK, UNK
     Route: 065
     Dates: start: 20220725
  6. DEXAMETHASONE [Concomitant]
     Active Substance: DEXAMETHASONE
     Dosage: UNK, UNK
     Route: 065
     Dates: start: 20220725

REACTIONS (7)
  - Restlessness [Recovered/Resolved]
  - Palpitations [Recovered/Resolved]
  - Tachypnoea [Unknown]
  - Tachycardia [Recovered/Resolved]
  - Anaemia [Recovered/Resolved]
  - Panic attack [Recovered/Resolved]
  - Stress [Recovered/Resolved]

NARRATIVE: CASE EVENT DATE: 20220809
